FAERS Safety Report 8087015 (Version 2)
Quarter: 2013Q2

REPORT INFORMATION
  Report Type: Spontaneous
  Country: US (occurrence: None)
  Receive Date: 20110726
  Receipt Date: 20121016
  Transmission Date: 20140414
  Serious: Yes (Other)
  Sender: FDA-Public Use
  Company Number: GAM-023-11-US

PATIENT
  Sex: 0

DRUGS (1)
  1. OCTAGAM IMMUNE GLOBULIN (HUMAN) [Suspect]
     Indication: HYPOGAMMAGLOBULINAEMIA
     Dosage: 20 G (1X4/WEEK), IV

REACTIONS (2)
  - THROMBOSIS [None]
  - Subclavian vein thrombosis [None]
